FAERS Safety Report 23800476 (Version 6)
Quarter: 2024Q4

REPORT INFORMATION
  Report Type: Report from Study
  Country: JP (occurrence: JP)
  Receive Date: 20240430
  Receipt Date: 20241120
  Transmission Date: 20250114
  Serious: Yes (Other)
  Sender: ALEXION PHARMACEUTICALS
  Company Number: 2024A098698

PATIENT
  Age: 36 Year
  Weight: 79 kg

DRUGS (46)
  1. ANIFROLUMAB [Suspect]
     Active Substance: ANIFROLUMAB
     Indication: Systemic lupus erythematosus
     Dosage: DOSE UNKNOWN
  2. ANIFROLUMAB [Suspect]
     Active Substance: ANIFROLUMAB
     Dosage: DOSE UNKNOWN
  3. ANIFROLUMAB [Suspect]
     Active Substance: ANIFROLUMAB
     Dosage: DOSE UNKNOWN
  4. ANIFROLUMAB [Suspect]
     Active Substance: ANIFROLUMAB
     Dosage: DOSE UNKNOWN
  5. PREDNISOLONE [Suspect]
     Active Substance: PREDNISOLONE
     Indication: Systemic lupus erythematosus
     Dosage: NUMBER OF SEPARATE DOSAGES UNKNOWN
  6. PREDNISOLONE [Suspect]
     Active Substance: PREDNISOLONE
     Dosage: NUMBER OF SEPARATE DOSAGES UNKNOWN
  7. PREDNISOLONE [Suspect]
     Active Substance: PREDNISOLONE
     Dosage: NUMBER OF SEPARATE DOSAGES UNKNOWN
  8. PREDNISOLONE [Suspect]
     Active Substance: PREDNISOLONE
     Dosage: NUMBER OF SEPARATE DOSAGES UNKNOWN
  9. ALLEGRA [Concomitant]
     Active Substance: FEXOFENADINE HYDROCHLORIDE
     Indication: Rhinitis allergic
     Dosage: NUMBER OF SEPARATE DOSAGES UNKNOWN
  10. ALLEGRA [Concomitant]
     Active Substance: FEXOFENADINE HYDROCHLORIDE
     Dosage: NUMBER OF SEPARATE DOSAGES UNKNOWN
  11. AMLODIPINE [Concomitant]
     Active Substance: AMLODIPINE BESYLATE
     Indication: Hypertension
     Dosage: NUMBER OF SEPARATE DOSAGES UNKNOWN
  12. AMLODIPINE [Concomitant]
     Active Substance: AMLODIPINE BESYLATE
     Dosage: NUMBER OF SEPARATE DOSAGES UNKNOWN
  13. TELMISARTAN [Concomitant]
     Active Substance: TELMISARTAN
     Indication: Hypertension
     Dosage: 20-40 MG, NUMBER OF SEPARATE DOSAGES UNKNOWN
  14. TELMISARTAN [Concomitant]
     Active Substance: TELMISARTAN
     Dosage: 20-40 MG, NUMBER OF SEPARATE DOSAGES UNKNOWN
  15. FAMOTIDINE [Concomitant]
     Active Substance: FAMOTIDINE
     Indication: Chronic gastritis
     Dosage: NUMBER OF SEPARATE DOSAGES UNKNOWN
  16. FAMOTIDINE [Concomitant]
     Active Substance: FAMOTIDINE
     Dosage: NUMBER OF SEPARATE DOSAGES UNKNOWN
  17. BONALON [Concomitant]
     Active Substance: ALENDRONATE SODIUM
     Indication: Osteoporosis
     Dosage: NUMBER OF SEPARATE DOSAGES UNKNOWN
  18. BONALON [Concomitant]
     Active Substance: ALENDRONATE SODIUM
     Dosage: NUMBER OF SEPARATE DOSAGES UNKNOWN
  19. BONALON [Concomitant]
     Active Substance: ALENDRONATE SODIUM
     Dosage: NUMBER OF SEPARATE DOSAGES UNKNOWN
  20. BONALON [Concomitant]
     Active Substance: ALENDRONATE SODIUM
     Dosage: NUMBER OF SEPARATE DOSAGES UNKNOWN
  21. TOCOPHERYL NICOTINATE, D-.ALPHA. [Concomitant]
     Active Substance: TOCOPHERYL NICOTINATE, D-.ALPHA.
     Indication: Hyperlipidaemia
     Dosage: NUMBER OF SEPARATE DOSAGES UNKNOWN
  22. TOCOPHERYL NICOTINATE, D-.ALPHA. [Concomitant]
     Active Substance: TOCOPHERYL NICOTINATE, D-.ALPHA.
     Dosage: NUMBER OF SEPARATE DOSAGES UNKNOWN
  23. TOCOPHERYL NICOTINATE, D-.ALPHA. [Concomitant]
     Active Substance: TOCOPHERYL NICOTINATE, D-.ALPHA.
     Dosage: NUMBER OF SEPARATE DOSAGES UNKNOWN
  24. TOCOPHERYL NICOTINATE, D-.ALPHA. [Concomitant]
     Active Substance: TOCOPHERYL NICOTINATE, D-.ALPHA.
     Dosage: NUMBER OF SEPARATE DOSAGES UNKNOWN
  25. FEBUXOSTAT [Concomitant]
     Active Substance: FEBUXOSTAT
     Indication: Hyperuricaemia
     Dosage: NUMBER OF SEPARATE DOSAGES UNKNOWN
  26. FEBUXOSTAT [Concomitant]
     Active Substance: FEBUXOSTAT
     Dosage: NUMBER OF SEPARATE DOSAGES UNKNOWN
  27. MOHRUS TAPE:L [Concomitant]
     Indication: Back pain
     Dosage: NUMBER OF SEPARATE DOSAGES UNKNOWN
  28. MOHRUS TAPE:L [Concomitant]
     Dosage: NUMBER OF SEPARATE DOSAGES UNKNOWN
  29. TSUMURA JUZENTAIHOTO EXTRACT GRANULES FOR ETHICAL USE [Concomitant]
     Indication: Fatigue
     Dosage: NUMBER OF SEPARATE DOSAGES UNKNOWN
  30. TSUMURA JUZENTAIHOTO EXTRACT GRANULES FOR ETHICAL USE [Concomitant]
     Dosage: NUMBER OF SEPARATE DOSAGES UNKNOWN
  31. LOXOPROFEN [Concomitant]
     Active Substance: LOXOPROFEN
     Indication: Back pain
     Dosage: NUMBER OF SEPARATE DOSAGES UNKNOWN
  32. LOXOPROFEN [Concomitant]
     Active Substance: LOXOPROFEN
     Dosage: NUMBER OF SEPARATE DOSAGES UNKNOWN
  33. ELDECALCITOL [Concomitant]
     Active Substance: ELDECALCITOL
     Indication: Osteoporosis
     Dosage: NUMBER OF SEPARATE DOSAGES UNKNOWN
  34. ELDECALCITOL [Concomitant]
     Active Substance: ELDECALCITOL
     Dosage: NUMBER OF SEPARATE DOSAGES UNKNOWN
  35. DIPYRIDAMOLE [Concomitant]
     Active Substance: DIPYRIDAMOLE
     Indication: Proteinuria
     Dosage: NUMBER OF SEPARATE DOSAGES UNKNOWN
  36. DIPYRIDAMOLE [Concomitant]
     Active Substance: DIPYRIDAMOLE
     Dosage: NUMBER OF SEPARATE DOSAGES UNKNOWN
  37. NIFEDIPINE [Concomitant]
     Active Substance: NIFEDIPINE
     Indication: Hypertension
     Dosage: NUMBER OF SEPARATE DOSAGES UNKNOWN
  38. NIFEDIPINE [Concomitant]
     Active Substance: NIFEDIPINE
     Dosage: NUMBER OF SEPARATE DOSAGES UNKNOWN
  39. CARVEDILOL [Concomitant]
     Active Substance: CARVEDILOL
     Indication: Hypertension
     Dosage: NUMBER OF SEPARATE DOSAGES UNKNOWN
  40. CARVEDILOL [Concomitant]
     Active Substance: CARVEDILOL
     Dosage: NUMBER OF SEPARATE DOSAGES UNKNOWN
  41. FOLIC ACID [Concomitant]
     Active Substance: FOLIC ACID
     Indication: Prophylaxis
  42. FOLIC ACID [Concomitant]
     Active Substance: FOLIC ACID
  43. NIFEDIPINE [Concomitant]
     Active Substance: NIFEDIPINE
     Indication: Hypertension
     Dosage: NUMBER OF SEPARATE DOSAGES UNKNOWN
  44. NIFEDIPINE [Concomitant]
     Active Substance: NIFEDIPINE
     Dosage: NUMBER OF SEPARATE DOSAGES UNKNOWN
  45. TSUMURA BOFUTSUSHOSAN EXTRACT GRANULES FOR ETHICAL USE [Concomitant]
     Indication: Hyperlipidaemia
     Dosage: NUMBER OF SEPARATE DOSAGES UNKNOWN
  46. TSUMURA BOFUTSUSHOSAN EXTRACT GRANULES FOR ETHICAL USE [Concomitant]
     Dosage: NUMBER OF SEPARATE DOSAGES UNKNOWN

REACTIONS (3)
  - Antiphospholipid syndrome [Not Recovered/Not Resolved]
  - Nasopharyngitis [Recovered/Resolved]
  - Tinea versicolour [Recovered/Resolved]
